FAERS Safety Report 16302719 (Version 6)
Quarter: 2020Q2

REPORT INFORMATION
  Report Type: Spontaneous
  Country: JP (occurrence: JP)
  Receive Date: 20190513
  Receipt Date: 20200620
  Transmission Date: 20200713
  Serious: Yes (Death, Other)
  Sender: FDA-Public Use
  Company Number: JP-AMGEN-JPNSP2019073866

PATIENT
  Age: 66 Year
  Sex: Male
  Weight: 63.2 kg

DRUGS (7)
  1. PARSABIV [Suspect]
     Active Substance: ETELCALCETIDE HYDROCHLORIDE
     Dosage: 5 MG, Q56H
     Route: 010
     Dates: start: 20190429, end: 20190503
  2. PARSABIV [Suspect]
     Active Substance: ETELCALCETIDE HYDROCHLORIDE
     Indication: HYPERPARATHYROIDISM SECONDARY
     Dosage: 5 MG, QW
     Route: 010
     Dates: start: 20190201, end: 20190227
  3. P-TOL [SUCROFERRIC OXYHYDROXIDE] [Concomitant]
     Active Substance: SUCROFERRIC OXYHYDROXIDE
     Dosage: 250 MILLIGRAM, QD
     Route: 048
     Dates: end: 20190505
  4. PARSABIV [Suspect]
     Active Substance: ETELCALCETIDE HYDROCHLORIDE
     Dosage: 5 MG, Q84H
     Route: 010
     Dates: start: 20190301, end: 20190311
  5. OXAROL [Concomitant]
     Active Substance: MAXACALCITOL
     Dosage: 2.5 UG, Q84H
     Route: 065
     Dates: start: 20181228, end: 20190503
  6. RENAGEL [Concomitant]
     Active Substance: SEVELAMER HYDROCHLORIDE
     Dosage: 1500 MILLIGRAM, QD
     Route: 065
     Dates: end: 20190505
  7. PARSABIV [Suspect]
     Active Substance: ETELCALCETIDE HYDROCHLORIDE
     Dosage: 2.5 MG, Q56H
     Route: 010
     Dates: start: 20190313, end: 20190327

REACTIONS (2)
  - Sudden death [Fatal]
  - Cystitis [Not Recovered/Not Resolved]

NARRATIVE: CASE EVENT DATE: 20190226
